FAERS Safety Report 6912314-1 (Version None)
Quarter: 2010Q3

REPORT INFORMATION
  Report Type: 
  Country: None (occurrence: None)
  Receive Date: 20100806
  Receipt Date: 20080313
  Transmission Date: 20110219
  Serious: No
  Sender: FDA-Public Use
  Company Number: US-PFIZER INC-2008024874

PATIENT
  Age: 60 Year
  Sex: Female
  Weight: 53.181 kg

DRUGS (13)
  1. VFEND [Suspect]
     Indication: COCCIDIOIDOMYCOSIS
     Dates: start: 20080101
  2. ZOCOR [Concomitant]
  3. SYMBICORT [Concomitant]
  4. SPIRIVA [Concomitant]
  5. DUONEB [Concomitant]
  6. ZYRTEC [Concomitant]
  7. CLARITIN [Concomitant]
  8. BECONASE [Concomitant]
     Route: 045
  9. FISH OIL [Concomitant]
  10. CALCIUM [Concomitant]
  11. MULTI-VITAMINS [Concomitant]
  12. ACETAMINOPHEN [Concomitant]
  13. VITAMIN TAB [Concomitant]

REACTIONS (2)
  - VISION BLURRED [None]
  - VISUAL IMPAIRMENT [None]
